FAERS Safety Report 5002551-8 (Version None)
Quarter: 2006Q2

REPORT INFORMATION
  Report Type: 
  Country: None (occurrence: None)
  Receive Date: 20060515
  Receipt Date: 20060502
  Transmission Date: 20061013
  Serious: Yes (Hospitalization)
  Sender: FDA-Public Use
  Company Number: SE-MERCK-0605SWE00004

PATIENT
  Age: 85 Year
  Sex: Male

DRUGS (9)
  1. FOSAMAX [Suspect]
     Route: 048
     Dates: end: 20060208
  2. WARFARIN SODIUM [Suspect]
     Indication: ATRIAL FIBRILLATION
     Route: 048
     Dates: end: 20060208
  3. FORMOTEROL FUMARATE [Concomitant]
     Route: 065
  4. TRAVOPROST [Concomitant]
     Route: 065
  5. DORZOLAMIDE HYDROCHLORIDE [Concomitant]
     Route: 065
  6. BUDESONIDE [Concomitant]
     Route: 065
  7. NITROGLYCERIN [Concomitant]
     Route: 065
  8. METOPROLOL SUCCINATE [Concomitant]
     Route: 065
  9. PRAVASTATIN SODIUM [Concomitant]
     Route: 065

REACTIONS (5)
  - CHEST PAIN [None]
  - HAEMORRHAGE [None]
  - MELAENA [None]
  - OESOPHAGEAL ADENOCARCINOMA [None]
  - OESOPHAGEAL ULCER [None]
